FAERS Safety Report 4980505-5 (Version None)
Quarter: 2006Q2

REPORT INFORMATION
  Report Type: 
  Country: None (occurrence: None)
  Receive Date: 20060424
  Receipt Date: 20060318
  Transmission Date: 20061013
  Serious: Yes (Other)
  Sender: FDA-Public Use
  Company Number: FR-BRISTOL-MYERS SQUIBB COMPANY-13320551

PATIENT
  Age: 76 Year
  Sex: Male
  Weight: 89 kg

DRUGS (4)
  1. ELISOR TABS 20 MG [Suspect]
     Indication: DYSLIPIDAEMIA
     Route: 048
     Dates: start: 20030401, end: 20060312
  2. FLECAINIDE ACETATE [Suspect]
     Indication: ATRIAL FIBRILLATION
     Dates: start: 20030901, end: 20060321
  3. KARDEGIC [Concomitant]
     Indication: PROPHYLAXIS
     Dates: start: 20030901
  4. SOPROL [Concomitant]
     Indication: SYSTOLIC HYPERTENSION
     Dates: start: 20030901

REACTIONS (11)
  - ALANINE AMINOTRANSFERASE INCREASED [None]
  - ASPARTATE AMINOTRANSFERASE INCREASED [None]
  - ASTHENIA [None]
  - BLOOD CREATINE PHOSPHOKINASE INCREASED [None]
  - BLOOD PRESSURE SYSTOLIC INCREASED [None]
  - EPSTEIN-BARR VIRUS TEST POSITIVE [None]
  - HEPATITIS [None]
  - HYPERBILIRUBINAEMIA [None]
  - MOTOR DYSFUNCTION [None]
  - MYALGIA [None]
  - SLEEP DISORDER [None]
